APPROVED DRUG PRODUCT: MESALAMINE
Active Ingredient: MESALAMINE
Strength: 1GM
Dosage Form/Route: SUPPOSITORY;RECTAL
Application: A204354 | Product #001 | TE Code: AB
Applicant: QUAGEN PHARMACEUTICALS LLC
Approved: Nov 24, 2015 | RLD: No | RS: No | Type: RX